FAERS Safety Report 18287353 (Version 3)
Quarter: 2020Q4

REPORT INFORMATION
  Report Type: Spontaneous
  Country: US (occurrence: US)
  Receive Date: 20200921
  Receipt Date: 20201022
  Transmission Date: 20210113
  Serious: No
  Sender: FDA-Public Use
  Company Number: US-009507513-2009USA006866

PATIENT
  Age: 11 Year
  Sex: Female

DRUGS (5)
  1. ASMANEX [Suspect]
     Active Substance: MOMETASONE FUROATE
     Dosage: TWICE DAILY
     Dates: start: 202009
  2. ASMANEX [Suspect]
     Active Substance: MOMETASONE FUROATE
     Indication: ASTHMA
     Dosage: AS NEEDED (PRN)
     Dates: start: 202009
  3. ASMANEX [Suspect]
     Active Substance: MOMETASONE FUROATE
     Dosage: SKIPS A DAY
     Dates: start: 202009
  4. ASMANEX [Suspect]
     Active Substance: MOMETASONE FUROATE
     Dosage: ONCE DAILY
     Dates: start: 202009
  5. ASMANEX [Suspect]
     Active Substance: MOMETASONE FUROATE
     Indication: ASTHMA
     Dosage: AS NEEDED

REACTIONS (7)
  - Device malfunction [Unknown]
  - Overdose [Unknown]
  - Incorrect dose administered [Unknown]
  - Circumstance or information capable of leading to medication error [Unknown]
  - Drug ineffective [Not Recovered/Not Resolved]
  - Product use issue [Unknown]
  - Poor quality device used [Unknown]

NARRATIVE: CASE EVENT DATE: 202009
